FAERS Safety Report 9303486 (Version 1)
Quarter: 2013Q2

REPORT INFORMATION
  Report Type: Spontaneous
  Country: US (occurrence: US)
  Receive Date: 20130522
  Receipt Date: 20130522
  Transmission Date: 20140414
  Serious: Yes (Other)
  Sender: FDA-Public Use
  Company Number: US-ELI_LILLY_AND_COMPANY-US201305004568

PATIENT
  Age: 50 Year
  Sex: Female

DRUGS (6)
  1. FORTEO [Suspect]
     Dosage: UNK
     Dates: start: 201107, end: 20130225
  2. LANTANON [Concomitant]
  3. ATENOL [Concomitant]
  4. CALCIUM [Concomitant]
     Dosage: 600 MG, QD
  5. NORVASC [Concomitant]
  6. VITAMIN D [Concomitant]
     Dosage: UNK

REACTIONS (7)
  - Blood creatine phosphokinase increased [Recovering/Resolving]
  - Muscle spasms [Unknown]
  - Inappropriate schedule of drug administration [Recovered/Resolved]
  - Urticaria [Unknown]
  - Bone pain [Unknown]
  - Urine calcium increased [Recovered/Resolved]
  - Urine calcium decreased [Unknown]
